FAERS Safety Report 26138758 (Version 1)
Quarter: 2025Q4

REPORT INFORMATION
  Report Type: Other
  Country: EU (occurrence: EU)
  Receive Date: 20251210
  Receipt Date: 20251210
  Transmission Date: 20260117
  Serious: Yes (Life-Threatening, Hospitalization)
  Sender: ZYDUS PHARM
  Company Number: None

PATIENT

DRUGS (2)
  1. SERTRALINE [Suspect]
     Active Substance: SERTRALINE HYDROCHLORIDE
     Indication: Product used for unknown indication
     Dosage: 4.2 GRAM
     Route: 048
     Dates: start: 20250824, end: 20250824
  2. COCAINE [Suspect]
     Active Substance: COCAINE
     Indication: Product used for unknown indication
     Dosage: UNK
     Route: 048
     Dates: start: 20250824, end: 20250824

REACTIONS (6)
  - Hypertonia [Recovered/Resolved]
  - Rhabdomyolysis [Recovered/Resolved]
  - Substance use disorder [Recovered/Resolved]
  - Drug use disorder [Recovered/Resolved]
  - Hepatic cytolysis [Recovered/Resolved]
  - Serotonin syndrome [Recovered/Resolved]

NARRATIVE: CASE EVENT DATE: 20250824
